FAERS Safety Report 4820554-0 (Version None)
Quarter: 2005Q4

REPORT INFORMATION
  Report Type: 
  Country: None (occurrence: None)
  Receive Date: 20051102
  Receipt Date: 20051102
  Transmission Date: 20060501
  Serious: Yes (Hospitalization)
  Sender: FDA-Public Use
  Company Number: None

PATIENT
  Age: 60 Year
  Sex: Male
  Weight: 123 kg

DRUGS (1)
  1. TRIMETHOPRIM [Suspect]
     Indication: PROSTATIC DISORDER
     Dosage: 100 MG BID
     Dates: start: 20050815, end: 20050919

REACTIONS (1)
  - HYPERKALAEMIA [None]
